FAERS Safety Report 9135351 (Version 2)
Quarter: 2013Q3

REPORT INFORMATION
  Report Type: Spontaneous
  Country: US (occurrence: US)
  Receive Date: 20130304
  Receipt Date: 20130709
  Transmission Date: 20140515
  Serious: Yes (Other)
  Sender: FDA-Public Use
  Company Number: US-PFIZER INC-2013069391

PATIENT
  Age: 20 Year
  Sex: Male
  Weight: 89.8 kg

DRUGS (2)
  1. BENEFIX [Suspect]
     Indication: FACTOR IX DEFICIENCY
     Dosage: 30 IU/KG PER WEEK, (3 TIMES PER WEEK)
  2. BENEFIX [Suspect]
     Dosage: 90 IU/KG, MONTHLY FOR PREVENTIVE

REACTIONS (4)
  - Haemorrhage [Unknown]
  - Joint injury [Unknown]
  - Disease complication [Unknown]
  - Off label use [Unknown]
